FAERS Safety Report 19180327 (Version 2)
Quarter: 2021Q2

REPORT INFORMATION
  Report Type: Spontaneous
  Country: US (occurrence: US)
  Receive Date: 20210426
  Receipt Date: 20210518
  Transmission Date: 20210717
  Serious: Yes (Hospitalization)
  Sender: FDA-Public Use
  Company Number: US-PFIZER INC-2021353728

PATIENT
  Age: 73 Year
  Sex: Female
  Weight: 102.04 kg

DRUGS (2)
  1. SUTENT [Suspect]
     Active Substance: SUNITINIB MALATE
     Indication: GASTROINTESTINAL STROMAL TUMOUR
     Dosage: 37.5 MG, DAILY (DAILY AT 6 P.M. FOR 14 DAYS)
     Route: 048
     Dates: start: 20210318, end: 202103
  2. SUTENT [Suspect]
     Active Substance: SUNITINIB MALATE
     Dosage: 37.5 MG, ALTERNATE DAY
     Route: 048
     Dates: start: 20210324

REACTIONS (6)
  - Asthenia [Unknown]
  - Fall [Unknown]
  - Back pain [Unknown]
  - Diarrhoea [Unknown]
  - Abnormal faeces [Unknown]
  - Off label use [Unknown]

NARRATIVE: CASE EVENT DATE: 20210319
